FAERS Safety Report 15185809 (Version 2)
Quarter: 2018Q4

REPORT INFORMATION
  Report Type: Spontaneous
  Country: US (occurrence: US)
  Receive Date: 20180723
  Receipt Date: 20180920
  Transmission Date: 20190204
  Serious: No
  Sender: FDA-Public Use
  Company Number: US-ASCENT PHARMACEUTICALS, INC.-2052617

PATIENT
  Age: 82 Year
  Sex: Female

DRUGS (1)
  1. OXYCODONE AND ACETAMINOPHEN [Suspect]
     Active Substance: ACETAMINOPHEN\OXYCODONE HYDROCHLORIDE
     Indication: BACK PAIN
     Route: 048

REACTIONS (10)
  - Malaise [Recovered/Resolved]
  - Headache [Recovered/Resolved]
  - Unevaluable event [Unknown]
  - Drug ineffective [Recovered/Resolved]
  - Hyperhidrosis [Recovered/Resolved]
  - Anger [Recovered/Resolved]
  - Nausea [Recovered/Resolved]
  - Nervousness [Recovered/Resolved]
  - Night sweats [Recovered/Resolved]
  - Feeling abnormal [Recovered/Resolved]
